FAERS Safety Report 25788906 (Version 5)
Quarter: 2025Q4

REPORT INFORMATION
  Report Type: Report from Study
  Country: CA (occurrence: US)
  Receive Date: 20250911
  Receipt Date: 20251226
  Transmission Date: 20260118
  Serious: Yes (Hospitalization, Other)
  Sender: TAKEDA
  Company Number: CA-TAKEDA-2025TUS079086

PATIENT
  Age: 59 Year
  Sex: Female

DRUGS (4)
  1. VEDOLIZUMAB [Suspect]
     Active Substance: VEDOLIZUMAB
     Indication: Colitis ulcerative
     Dosage: 300 MILLIGRAM
  2. RISEDRONATE SODIUM [Concomitant]
     Active Substance: RISEDRONATE SODIUM
     Dosage: UNK
  3. MESALAMINE [Concomitant]
     Active Substance: MESALAMINE
     Dosage: UNK
  4. Cortiment [Concomitant]
     Dosage: UNK

REACTIONS (5)
  - Cerebrovascular accident [Unknown]
  - Colitis ulcerative [Unknown]
  - Inappropriate schedule of product administration [Unknown]
  - Aphasia [Unknown]
  - Fall [Recovered/Resolved]
